FAERS Safety Report 8227350-5 (Version None)
Quarter: 2012Q1

REPORT INFORMATION
  Report Type: 
  Country: None (occurrence: None)
  Receive Date: 20120322
  Receipt Date: 20120316
  Transmission Date: 20120608
  Serious: Yes (Hospitalization, Other)
  Sender: FDA-Public Use
  Company Number: US-BAYER-2011-105660

PATIENT
  Age: 51 Year
  Sex: Female
  Weight: 56.689 kg

DRUGS (1)
  1. YAZ [Suspect]
     Indication: CONTRACEPTION
     Dosage: UNK
     Dates: start: 20090401, end: 20091201

REACTIONS (8)
  - INJURY [None]
  - PAIN [None]
  - NAUSEA [None]
  - BILIARY COLIC [None]
  - EMOTIONAL DISTRESS [None]
  - ANHEDONIA [None]
  - HEPATIC ADENOMA [None]
  - VOMITING [None]
